FAERS Safety Report 6338470-4 (Version None)
Quarter: 2009Q3

REPORT INFORMATION
  Report Type: 
  Country: None (occurrence: None)
  Receive Date: 20090901
  Receipt Date: 20090819
  Transmission Date: 20100115
  Serious: Yes (Hospitalization)
  Sender: FDA-Public Use
  Company Number: 8050706

PATIENT
  Age: 61 Year
  Sex: Female
  Weight: 55.3 kg

DRUGS (14)
  1. CIMZIA [Suspect]
     Indication: CROHN'S DISEASE
     Dosage: 400 MG SC
     Route: 058
     Dates: start: 20090201
  2. ATIVAN [Concomitant]
  3. AVALIDE [Concomitant]
  4. FLAGYL [Concomitant]
  5. GLUCOPHAGE [Concomitant]
  6. NOVOLIN R [Concomitant]
  7. POTASSIUM CHLORIDE [Concomitant]
  8. PREDNISONE TAB [Concomitant]
  9. PREVACID [Concomitant]
  10. PROZAC [Concomitant]
  11. VENTOLIN [Concomitant]
  12. WELCHOL [Concomitant]
  13. CENTRUM [Concomitant]
  14. LORTAB [Concomitant]

REACTIONS (2)
  - MASS [None]
  - OBSTRUCTION GASTRIC [None]
